FAERS Safety Report 15899880 (Version 2)
Quarter: 2019Q1

REPORT INFORMATION
  Report Type: Report from Study
  Country: DE (occurrence: DE)
  Receive Date: 20190201
  Receipt Date: 20190207
  Transmission Date: 20190417
  Serious: Yes (Hospitalization)
  Sender: FDA-Public Use
  Company Number: DE-ROCHE-2249281

PATIENT
  Age: 76 Year
  Sex: Male
  Weight: 86.1 kg

DRUGS (6)
  1. ATEZOLIZUMAB. [Suspect]
     Active Substance: ATEZOLIZUMAB
     Indication: PLASMA CELL MYELOMA
     Dosage: ON DAY 1 AND DAY 15 OF EACH 28-DAY CYCLE?MOST RECENT DOSE (840 MG) OF ATEZOLIZUMAB PRIOR TO VASOVAGA
     Route: 042
     Dates: start: 20190114
  2. VENETOCLAX. [Suspect]
     Active Substance: VENETOCLAX
     Indication: PLASMA CELL MYELOMA
     Dosage: ON DAYS 1-28 OF EACH 28-DAY CYCLE?ON 17/JAN/2019, HE RECEIVED THE MOST RECENT DOSE (800 MG) OF VENET
     Route: 048
     Dates: start: 20190114
  3. COBIMETINIB. [Suspect]
     Active Substance: COBIMETINIB
     Indication: PLASMA CELL MYELOMA
     Dosage: ON DAYS 1-21 OF EACH 28-DAY CYCLE?ON 17/JAN/2019, HE RECEIVED THE MOST RECENT DOSE (40 MG) OF COBIME
     Route: 048
     Dates: start: 20190114
  4. DEKRISTOL [Concomitant]
     Active Substance: CHOLECALCIFEROL
     Route: 048
  5. TOREM [Concomitant]
     Active Substance: TORSEMIDE
     Indication: HYPERTENSION
     Route: 048
     Dates: start: 2014
  6. BONDRONAT [Concomitant]
     Active Substance: IBANDRONATE SODIUM
     Route: 042
     Dates: start: 201405

REACTIONS (1)
  - Syncope [Recovered/Resolved]

NARRATIVE: CASE EVENT DATE: 20190118
